FAERS Safety Report 16395516 (Version 1)
Quarter: 2019Q2

REPORT INFORMATION
  Report Type: Spontaneous
  Country: DE (occurrence: DE)
  Receive Date: 20190605
  Receipt Date: 20190605
  Transmission Date: 20190711
  Serious: Yes (Other)
  Sender: FDA-Public Use
  Company Number: DE-MYLANLABS-2019M1051444

PATIENT
  Sex: Male
  Weight: 3 kg

DRUGS (1)
  1. TRAMADOL. [Suspect]
     Active Substance: TRAMADOL
     Indication: CHOLECYSTECTOMY
     Dosage: 300 MILLIGRAM, QD
     Route: 064

REACTIONS (8)
  - Withdrawal syndrome [Recovered/Resolved]
  - Neonatal tachypnoea [Unknown]
  - Neonatal tachycardia [Unknown]
  - Tetany [Unknown]
  - Tremor [Unknown]
  - Foetal exposure during pregnancy [Recovered/Resolved]
  - Hypertonia [Unknown]
  - Neonatal seizure [Unknown]
